FAERS Safety Report 9656562 (Version 6)
Quarter: 2015Q1

REPORT INFORMATION
  Report Type: Spontaneous
  Country: US (occurrence: US)
  Receive Date: 20131030
  Receipt Date: 20150302
  Transmission Date: 20150721
  Serious: Yes (Hospitalization, Disabling, Other)
  Sender: FDA-Public Use
  Company Number: US-009507513-1310USA010696

PATIENT
  Sex: Female

DRUGS (4)
  1. OMEGA-3 MARINE TRIGLYCERIDES [Concomitant]
     Active Substance: FISH OIL
     Dosage: 1000 MG, UNK
     Route: 048
     Dates: start: 2008, end: 2013
  2. ALENDRONATE SODIUM. [Suspect]
     Active Substance: ALENDRONATE SODIUM
     Indication: OSTEOPOROSIS
     Dosage: 70 MG, QW
     Route: 048
     Dates: start: 20080616, end: 20120216
  3. PRILOSEC [Concomitant]
     Active Substance: OMEPRAZOLE MAGNESIUM
     Dosage: UNK, QD
     Dates: start: 2008
  4. FOSAMAX [Suspect]
     Active Substance: ALENDRONATE SODIUM
     Indication: OSTEOPOROSIS
     Dosage: 70 MG, QW
     Route: 048
     Dates: start: 20070402, end: 20080815

REACTIONS (12)
  - Heart rate irregular [Unknown]
  - Pain in extremity [Not Recovered/Not Resolved]
  - Femur fracture [Recovered/Resolved]
  - Diabetes mellitus [Unknown]
  - Intramedullary rod insertion [Unknown]
  - Shoulder operation [Unknown]
  - Arthritis [Unknown]
  - Sleep disorder [Unknown]
  - Hysterectomy [Unknown]
  - Ligament operation [Unknown]
  - Hypertension [Unknown]
  - Osteoporosis [Unknown]

NARRATIVE: CASE EVENT DATE: 2008
